FAERS Safety Report 7949677-4 (Version None)
Quarter: 2011Q4

REPORT INFORMATION
  Report Type: 
  Country: None (occurrence: None)
  Receive Date: 20111130
  Receipt Date: 20111123
  Transmission Date: 20120403
  Serious: Yes (Life-Threatening, Hospitalization)
  Sender: FDA-Public Use
  Company Number: US-ACTELION-A-NJ2011-56715

PATIENT

DRUGS (4)
  1. TRACLEER [Suspect]
     Dosage: UNK
     Route: 048
     Dates: start: 20030509
  2. TRACLEER [Suspect]
     Indication: PULMONARY ARTERIAL HYPERTENSION
     Dosage: 125 MG, BID
     Route: 048
  3. SILDENAFIL [Concomitant]
  4. TYVASO [Concomitant]

REACTIONS (5)
  - RENAL FAILURE [None]
  - ANAEMIA [None]
  - TRANSFUSION [None]
  - GASTRITIS EROSIVE [None]
  - GASTROINTESTINAL HAEMORRHAGE [None]
